FAERS Safety Report 25137159 (Version 2)
Quarter: 2025Q4

REPORT INFORMATION
  Report Type: Report from Study
  Country: KR (occurrence: KR)
  Receive Date: 20250329
  Receipt Date: 20251107
  Transmission Date: 20260118
  Serious: Yes (Death, Life-Threatening, Hospitalization, Other)
  Sender: ABBVIE
  Company Number: KR-ABBVIE-6201492

PATIENT
  Age: 78 Year
  Sex: Female
  Weight: 67 kg

DRUGS (55)
  1. VENCLEXTA [Suspect]
     Active Substance: VENETOCLAX
     Indication: Acute myeloid leukaemia
     Route: 048
     Dates: start: 20241030, end: 20241030
  2. VENCLEXTA [Suspect]
     Active Substance: VENETOCLAX
     Indication: Acute myeloid leukaemia
     Route: 048
     Dates: start: 20241029, end: 20241029
  3. VENCLEXTA [Suspect]
     Active Substance: VENETOCLAX
     Indication: Acute myeloid leukaemia
     Route: 048
     Dates: start: 20241031, end: 20241031
  4. VENCLEXTA [Suspect]
     Active Substance: VENETOCLAX
     Indication: Acute myeloid leukaemia
     Route: 048
     Dates: start: 20241028, end: 20241028
  5. VENCLEXTA [Suspect]
     Active Substance: VENETOCLAX
     Indication: Acute myeloid leukaemia
     Route: 048
     Dates: start: 20241227, end: 20250101
  6. VENCLEXTA [Suspect]
     Active Substance: VENETOCLAX
     Indication: Acute myeloid leukaemia
     Route: 048
     Dates: start: 20250102, end: 20250131
  7. TRANEXAMIC ACID [Concomitant]
     Active Substance: TRANEXAMIC ACID
     Indication: Haemoptysis
     Dosage: 500MG/5ML
     Route: 042
     Dates: start: 20241114, end: 20241124
  8. TRANEXAMIC ACID [Concomitant]
     Active Substance: TRANEXAMIC ACID
     Indication: Haemoptysis
     Dosage: 500MG/5ML
     Route: 042
     Dates: start: 20241031, end: 20241124
  9. NEXIUM I.V. [Concomitant]
     Active Substance: ESOMEPRAZOLE SODIUM
     Indication: Nausea
     Route: 042
     Dates: start: 20241105, end: 20241204
  10. BACTRIM [Concomitant]
     Active Substance: SULFAMETHOXAZOLE\TRIMETHOPRIM
     Indication: Infection prophylaxis
     Dosage: TIME INTERVAL: 0.33333333 DAYS
     Route: 042
     Dates: start: 20241115, end: 20241204
  11. Ultracet er semi [Concomitant]
     Indication: Headache
     Route: 048
     Dates: start: 20250120, end: 20250121
  12. Tazoperan [Concomitant]
     Indication: Pyrexia
     Route: 042
     Dates: start: 20241230, end: 20250102
  13. Tazoperan [Concomitant]
     Indication: Pyrexia
     Route: 042
     Dates: start: 20241029, end: 20241106
  14. RAMOSETRON HYDROCHLORIDE [Concomitant]
     Active Substance: RAMOSETRON HYDROCHLORIDE
     Indication: Prophylaxis of nausea and vomiting
     Route: 042
     Dates: start: 20241028, end: 20250102
  15. Coldaewon cough [Concomitant]
     Indication: Cough
     Dosage: TIME INTERVAL: 0.33333333 DAYS
     Route: 048
     Dates: start: 20241106, end: 20241119
  16. SULFAMETHOXAZOLE\TRIMETHOPRIM [Concomitant]
     Active Substance: SULFAMETHOXAZOLE\TRIMETHOPRIM
     Indication: Infection prophylaxis
     Route: 048
     Dates: start: 20241028, end: 20250116
  17. CALCIUM POLYCARBOPHIL [Concomitant]
     Active Substance: CALCIUM POLYCARBOPHIL
     Indication: Constipation
     Route: 048
     Dates: start: 20241107, end: 20241122
  18. LASIX [Concomitant]
     Active Substance: FUROSEMIDE
     Indication: Oedema
     Route: 042
     Dates: start: 20241110, end: 20241201
  19. Hydrine [Concomitant]
     Indication: Acute myeloid leukaemia
     Route: 048
     Dates: start: 20241025, end: 20241030
  20. MAGNESIUM HYDROXIDE [Concomitant]
     Active Substance: MAGNESIUM HYDROXIDE
     Indication: Constipation
     Route: 048
     Dates: start: 20241106, end: 20241122
  21. VFEND [Concomitant]
     Active Substance: VORICONAZOLE
     Indication: Aspergillus infection
     Dosage: 200MG
     Route: 042
     Dates: start: 20241204
  22. Norzyme [Concomitant]
     Indication: Dyspepsia
     Dosage: TIME INTERVAL: 0.33333333 DAYS
     Route: 048
     Dates: start: 20241129, end: 20250217
  23. SUMATRIPTAN SUCCINATE [Concomitant]
     Active Substance: SUMATRIPTAN SUCCINATE
     Indication: Headache
     Route: 048
     Dates: start: 20250122, end: 20250204
  24. Green cough [Concomitant]
     Indication: Pneumonia
     Dosage: TIME INTERVAL: 0.33333333 DAYS
     Route: 048
     Dates: start: 20241226, end: 20250217
  25. MEROPENEM [Concomitant]
     Active Substance: MEROPENEM
     Indication: Pyrexia
     Dosage: TIME INTERVAL: 0.33333333 DAYS
     Route: 042
     Dates: start: 20241115, end: 20241127
  26. Dulackhan easy [Concomitant]
     Indication: Constipation
     Route: 048
     Dates: start: 20241106, end: 20241122
  27. Dulackhan easy [Concomitant]
     Indication: Constipation
     Route: 048
     Dates: start: 20241129, end: 20241209
  28. LENOGRASTIM [Concomitant]
     Active Substance: LENOGRASTIM
     Indication: Neutrophil count decreased
     Route: 042
     Dates: start: 20241121, end: 20241209
  29. LENOGRASTIM [Concomitant]
     Active Substance: LENOGRASTIM
     Indication: Neutrophil count decreased
     Route: 042
     Dates: start: 20250116, end: 20250207
  30. NORVASC [Concomitant]
     Active Substance: AMLODIPINE BESYLATE
     Indication: Blood pressure increased
     Route: 048
     Dates: start: 20241104, end: 20241110
  31. ORNITHINE ASPARTATE [Concomitant]
     Active Substance: ORNITHINE ASPARTATE
     Indication: Blood bilirubin increased
     Dosage: 500MG/5ML
     Route: 042
     Dates: start: 20241114, end: 20241121
  32. PRUCALOPRIDE SUCCINATE [Concomitant]
     Active Substance: PRUCALOPRIDE SUCCINATE
     Indication: Constipation
     Dosage: M
     Route: 048
     Dates: start: 20241205, end: 20241209
  33. Vacrax [Concomitant]
     Indication: Infection prophylaxis
     Route: 048
     Dates: start: 20241028, end: 20250116
  34. Dong a perdipine [Concomitant]
     Indication: Blood pressure increased
     Dosage: TIME INTERVAL: AS NECESSARY
     Route: 042
     Dates: start: 20241101, end: 20241110
  35. Daewoong meropenem [Concomitant]
     Indication: Pyrexia
     Dosage: TIME INTERVAL: 0.33333333 DAYS: 500MG
     Route: 042
     Dates: start: 20250117, end: 20250204
  36. CANDESARTAN CILEXETIL\HYDROCHLOROTHIAZIDE [Concomitant]
     Active Substance: CANDESARTAN CILEXETIL\HYDROCHLOROTHIAZIDE
     Indication: Hypertension
     Dosage: 16/12.5MG
     Route: 048
     Dates: start: 20241025, end: 20241110
  37. LEVOFLOXACIN [Concomitant]
     Active Substance: LEVOFLOXACIN
     Indication: Pneumonia
     Dosage: 500MG/100ML
     Route: 042
     Dates: start: 20241115, end: 20241204
  38. LEVOFLOXACIN [Concomitant]
     Active Substance: LEVOFLOXACIN
     Indication: Pneumonia
     Route: 042
     Dates: start: 20250204, end: 20250206
  39. NOXAFIL [Concomitant]
     Active Substance: POSACONAZOLE
     Indication: Infection prophylaxis
     Dosage: 100 MG
     Route: 048
     Dates: start: 20241028, end: 20241114
  40. MAXIPIME [Concomitant]
     Active Substance: CEFEPIME HYDROCHLORIDE
     Indication: Pyrexia
     Dosage: TIME INTERVAL: 0.33333333 DAYS
     Route: 042
     Dates: start: 20241106, end: 20241115
  41. MAXIPIME [Concomitant]
     Active Substance: CEFEPIME HYDROCHLORIDE
     Indication: Pyrexia
     Dosage: TIME INTERVAL: 0.33333333 DAYS
     Route: 042
     Dates: start: 20250116, end: 20250117
  42. METOCLOPRAMIDE HYDROCHLORIDE [Concomitant]
     Active Substance: METOCLOPRAMIDE HYDROCHLORIDE
     Indication: Nausea
     Dosage: 2ML
     Route: 042
     Dates: start: 20241105, end: 20241127
  43. Tylicol [Concomitant]
     Indication: Pyrexia
     Route: 042
     Dates: start: 20241027, end: 20241028
  44. Tylicol [Concomitant]
     Indication: Pyrexia
     Dosage: TIME INTERVAL: AS NECESSARY
     Route: 042
     Dates: start: 20250116, end: 20250119
  45. ACETYLCYSTEINE [Concomitant]
     Active Substance: ACETYLCYSTEINE
     Indication: Haemoptysis
     Dosage: 9ML
     Route: 042
     Dates: start: 20241120, end: 20241210
  46. Daewoong vancomycin [Concomitant]
     Indication: Pyrexia
     Route: 042
     Dates: start: 20250119, end: 20250204
  47. Fedulow [Concomitant]
     Indication: Prophylaxis
     Dosage: SUSP 20 ML
     Route: 048
     Dates: start: 20250203
  48. Simvastar [Concomitant]
     Indication: Dyslipidaemia
     Route: 048
     Dates: start: 20241025, end: 20241110
  49. ERDOSTEINE [Concomitant]
     Active Substance: ERDOSTEINE
     Indication: Haemoptysis
     Route: 048
     Dates: start: 20241120, end: 20250217
  50. Dukarb [Concomitant]
     Indication: Hypertension
     Route: 048
     Dates: start: 20241111
  51. Vizadakin [Concomitant]
     Indication: Acute myeloid leukaemia
     Route: 042
     Dates: start: 20241028, end: 20241103
  52. Vizadakin [Concomitant]
     Indication: Acute myeloid leukaemia
     Route: 042
     Dates: start: 20241227, end: 20250102
  53. ALLOPURINOL [Concomitant]
     Active Substance: ALLOPURINOL
     Indication: Prophylaxis
     Route: 048
     Dates: start: 20241025, end: 20241119
  54. Venitol [Concomitant]
     Indication: Haemorrhoids
     Dosage: TIME INTERVAL: 0.33333333 DAYS
     Route: 048
     Dates: start: 20241107, end: 20241122
  55. Naxozol [Concomitant]
     Indication: Pyrexia
     Dosage: 500/20MG
     Route: 048
     Dates: start: 20241111, end: 20241114

REACTIONS (1)
  - Haemorrhage intracranial [Fatal]

NARRATIVE: CASE EVENT DATE: 20250222
